FAERS Safety Report 23787359 (Version 6)
Quarter: 2024Q4

REPORT INFORMATION
  Report Type: Spontaneous
  Country: US (occurrence: US)
  Receive Date: 20240426
  Receipt Date: 20241121
  Transmission Date: 20250114
  Serious: Yes (Life-Threatening, Hospitalization, Other)
  Sender: GLAXOSMITHKLINE
  Company Number: US-GLAXOSMITHKLINE-US2024AMR051092

PATIENT

DRUGS (31)
  1. LAMICTAL [Suspect]
     Active Substance: LAMOTRIGINE
     Indication: Bipolar disorder
     Dosage: 25 MG, BID
     Route: 048
     Dates: start: 20220507, end: 20220527
  2. LAMICTAL [Suspect]
     Active Substance: LAMOTRIGINE
     Dosage: 50 MG
  3. LAMICTAL [Suspect]
     Active Substance: LAMOTRIGINE
     Dosage: 100 MG
     Dates: end: 20220527
  4. MINERAL OIL\PETROLATUM [Concomitant]
     Active Substance: MINERAL OIL\PETROLATUM
     Indication: Product used for unknown indication
     Dosage: UNK UNK, QD, 1 APPLICATION EACH EYE
  5. CHLORHEXIDINE [Concomitant]
     Active Substance: CHLORHEXIDINE
     Indication: Product used for unknown indication
     Dosage: 15 ML, BID
     Dates: start: 20220601
  6. LURASIDONE [Concomitant]
     Active Substance: LURASIDONE
     Indication: Product used for unknown indication
     Dosage: 80 MG, QD
  7. CIPROFLOXACIN [Concomitant]
     Active Substance: CIPROFLOXACIN
     Indication: Product used for unknown indication
     Dosage: UNK UNK, QID, 1 DROP BOTH EYES
     Dates: start: 20220601
  8. AZITHROMYCIN [Concomitant]
     Active Substance: AZITHROMYCIN
     Indication: Product used for unknown indication
     Dosage: 250 MG, QD
  9. NOVOLOG [Concomitant]
     Active Substance: INSULIN ASPART
     Indication: Product used for unknown indication
     Dosage: UNK, Q6H PRN
     Dates: start: 20220601
  10. ACETYLCYSTEINE [Concomitant]
     Active Substance: ACETYLCYSTEINE
     Indication: Product used for unknown indication
     Dosage: UNK
  11. LOVENOX [Concomitant]
     Active Substance: ENOXAPARIN SODIUM
     Indication: Product used for unknown indication
     Dosage: 1 ML, BID, FOR 14 DAYS
     Route: 058
  12. DEXTROSE [Concomitant]
     Active Substance: DEXTROSE MONOHYDRATE
     Indication: Product used for unknown indication
     Dosage: 25 G PRN
     Route: 042
     Dates: start: 20220601
  13. DIPHENHYDRAMINE [Concomitant]
     Active Substance: DIPHENHYDRAMINE
     Indication: Product used for unknown indication
     Dosage: 50 MG, QD
  14. FENTANYL [Concomitant]
     Active Substance: FENTANYL
     Indication: Product used for unknown indication
     Dosage: UNK, 50 ?G, Q2H PRN
  15. HEPARIN [Concomitant]
     Active Substance: HEPARIN SODIUM
     Indication: Product used for unknown indication
     Dosage: UNK UNK, BID
     Dates: start: 20220601
  16. GAMUNEX [Concomitant]
     Active Substance: HUMAN IMMUNOGLOBULIN G
     Indication: Product used for unknown indication
     Dosage: UNK, DAILY VARIABLE
  17. PREDNISOLONE [Concomitant]
     Active Substance: PREDNISOLONE
     Indication: Product used for unknown indication
     Dosage: UNK UNK, QID, , 1 DROP BOTH EYES
  18. LACTATED RINGERS SOLUTION [Concomitant]
     Active Substance: CALCIUM CHLORIDE\POTASSIUM CHLORIDE\SODIUM CHLORIDE\SODIUM LACTATE
     Indication: Product used for unknown indication
     Dosage: UNK, ONCE
     Dates: start: 20220601
  19. MAGNESIUM SULFATE [Concomitant]
     Active Substance: MAGNESIUM SULFATE
     Indication: Product used for unknown indication
     Route: 042
  20. PANTOPRAZOLE [Concomitant]
     Active Substance: PANTOPRAZOLE
     Indication: Product used for unknown indication
     Dosage: UNK
  21. SODIUM CHLORIDE [Concomitant]
     Active Substance: SODIUM CHLORIDE
     Indication: Product used for unknown indication
     Dosage: UNK
  22. SODIUM PHOSPHATES [Concomitant]
     Active Substance: SODIUM PHOSPHATE, DIBASIC, ANHYDROUS\SODIUM PHOSPHATE, MONOBASIC, MONOHYDRATE
     Indication: Product used for unknown indication
     Dosage: UNK, ONCE
  23. VANCOMYCIN [Concomitant]
     Active Substance: VANCOMYCIN
     Indication: Product used for unknown indication
     Dosage: UNK, Q24H
     Route: 042
  24. ACYCLOVIR [Concomitant]
     Active Substance: ACYCLOVIR
     Indication: Product used for unknown indication
     Dosage: UNK
  25. PROGRAF [Concomitant]
     Active Substance: TACROLIMUS
     Indication: Product used for unknown indication
     Dosage: UNK
  26. PREDNISONE [Concomitant]
     Active Substance: PREDNISONE
     Indication: Product used for unknown indication
     Dosage: UNK
  27. TRETINOIN [Concomitant]
     Active Substance: TRETINOIN
     Indication: Product used for unknown indication
     Dosage: UNK
  28. AQUAPHOR [Concomitant]
     Active Substance: PETROLATUM
     Indication: Product used for unknown indication
     Dosage: UNK
  29. CELLCEPT [Concomitant]
     Active Substance: MYCOPHENOLATE MOFETIL
     Indication: Product used for unknown indication
     Dosage: UNK
  30. AVEENO [Concomitant]
     Active Substance: DIMETHICONE\HOMOSALATE\OCTINOXATE\OCTISALATE\TITANIUM DIOXIDE
     Indication: Product used for unknown indication
     Dosage: UNK
  31. CEFEPIME [Concomitant]
     Active Substance: CEFEPIME HYDROCHLORIDE
     Indication: Product used for unknown indication
     Dosage: UNK

REACTIONS (89)
  - Stevens-Johnson syndrome [Recovered/Resolved]
  - Toxic epidermal necrolysis [Unknown]
  - SJS-TEN overlap [Unknown]
  - Hypersensitivity [Unknown]
  - Pyrexia [Unknown]
  - Vision blurred [Recovering/Resolving]
  - Acute respiratory failure [Recovering/Resolving]
  - Unresponsive to stimuli [Unknown]
  - Dependence on respirator [Recovering/Resolving]
  - Ventricular tachycardia [Unknown]
  - Sepsis [Unknown]
  - Acute kidney injury [Unknown]
  - Syncope [Unknown]
  - Pulmonary embolism [Unknown]
  - Punctate keratitis [Unknown]
  - Urinary retention [Unknown]
  - Acute respiratory distress syndrome [Unknown]
  - Amniotic membrane graft [Unknown]
  - Symblepharon [Not Recovered/Not Resolved]
  - Cataract [Unknown]
  - Pulmonary congestion [Unknown]
  - Pulmonary thrombosis [Unknown]
  - Keratitis interstitial [Not Recovered/Not Resolved]
  - Bronchial ulceration [Unknown]
  - Pneumonia [Unknown]
  - Hypoxia [Unknown]
  - Hypotension [Unknown]
  - Oedema genital [Unknown]
  - Lip exfoliation [Unknown]
  - Skin exfoliation [Unknown]
  - Rash pruritic [Unknown]
  - Rash [Unknown]
  - Pleural effusion [Recovering/Resolving]
  - Oxygen saturation decreased [Recovering/Resolving]
  - Tachycardia [Unknown]
  - Anxiety [Unknown]
  - Hyperglycaemia [Unknown]
  - Hypertension [Unknown]
  - Restlessness [Unknown]
  - Skin wound [Unknown]
  - Hypomagnesaemia [Unknown]
  - Rash erythematous [Unknown]
  - Hypophosphataemia [Unknown]
  - Conjunctival scar [Unknown]
  - Blood magnesium increased [Unknown]
  - Blood glucose increased [Unknown]
  - Cough [Not Recovered/Not Resolved]
  - Dysphagia [Unknown]
  - Oedema peripheral [Unknown]
  - Penile discomfort [Unknown]
  - Obstructive airways disorder [Unknown]
  - Sputum discoloured [Unknown]
  - Abdominal distension [Unknown]
  - Dry eye [Unknown]
  - Entropion [Unknown]
  - Pseudophakia [Unknown]
  - Wheezing [Unknown]
  - Blood lactic acid increased [Recovered/Resolved]
  - Urethral pain [Unknown]
  - Dysuria [Unknown]
  - Odynophagia [Unknown]
  - Nausea [Unknown]
  - Pain [Unknown]
  - Eye injury [Recovering/Resolving]
  - Trichiasis [Unknown]
  - Ocular hyperaemia [Unknown]
  - Asthenopia [Unknown]
  - Eye pain [Unknown]
  - Gait disturbance [Unknown]
  - Corneal scar [Unknown]
  - Haemoglobin decreased [Unknown]
  - Sputum retention [Unknown]
  - Dyspnoea [Not Recovered/Not Resolved]
  - Upper-airway cough syndrome [Unknown]
  - Scar [Recovering/Resolving]
  - Nail deformation [Unknown]
  - Oral mucosal exfoliation [Unknown]
  - Memory impairment [Unknown]
  - Aphasia [Unknown]
  - Fatigue [Unknown]
  - Balance disorder [Unknown]
  - Clumsiness [Unknown]
  - Asthenia [Unknown]
  - Depression [Unknown]
  - Loss of personal independence in daily activities [Unknown]
  - Vocal cord dysfunction [Unknown]
  - Photophobia [Unknown]
  - Penile exfoliation [Unknown]
  - Visual impairment [Unknown]

NARRATIVE: CASE EVENT DATE: 20220529
